FAERS Safety Report 9000021 (Version 3)
Quarter: 2013Q1

REPORT INFORMATION
  Report Type: Spontaneous
  Country: JP (occurrence: JP)
  Receive Date: 20130102
  Receipt Date: 20130313
  Transmission Date: 20140127
  Serious: Yes (Hospitalization, Other)
  Sender: FDA-Public Use
  Company Number: JP-PFIZER INC-2012332655

PATIENT
  Age: 80 Year
  Sex: Female
  Weight: 41.7 kg

DRUGS (6)
  1. LIPITOR [Suspect]
     Indication: HYPERLIPIDAEMIA
     Dosage: 10 MG, ONCE DAILY
     Route: 048
     Dates: start: 20050305, end: 20120902
  2. BAYASPIRIN [Concomitant]
     Indication: ANGINA PECTORIS
     Dosage: UNK
     Dates: start: 20050305
  3. NORVASC [Concomitant]
     Indication: HYPERTENSION
     Dosage: UNK
     Dates: start: 20050305, end: 20120828
  4. DIOVAN [Concomitant]
     Indication: HYPERTENSION
     Dosage: UNK
     Dates: start: 20050305, end: 20120828
  5. RYTHMODAN [Concomitant]
     Indication: ATRIAL FIBRILLATION
     Dosage: UNK
     Dates: start: 20050305
  6. DEPAS [Concomitant]
     Indication: ANXIETY DISORDER
     Dosage: UNK
     Route: 048
     Dates: start: 20050305

REACTIONS (19)
  - Rhabdomyolysis [Recovered/Resolved]
  - Myoglobin blood increased [Unknown]
  - Troponin I increased [Unknown]
  - Gastrointestinal oedema [Unknown]
  - Urinary tract infection [Recovered/Resolved]
  - Malaise [Recovering/Resolving]
  - Decreased appetite [Recovered/Resolved]
  - Blood albumin decreased [Unknown]
  - Blood alkaline phosphatase decreased [Unknown]
  - Blood calcium decreased [Unknown]
  - Blood cholinesterase decreased [Unknown]
  - Blood creatine phosphokinase MB increased [Unknown]
  - Blood urea decreased [Unknown]
  - Blood triglycerides decreased [Recovered/Resolved]
  - Haematocrit decreased [Unknown]
  - Haemoglobin decreased [Unknown]
  - Red blood cell count decreased [Unknown]
  - Lymphocyte percentage decreased [Recovered/Resolved]
  - Protein total decreased [Unknown]
